FAERS Safety Report 13443860 (Version 1)
Quarter: 2017Q2

REPORT INFORMATION
  Report Type: Spontaneous
  Country: US (occurrence: US)
  Receive Date: 20170413
  Receipt Date: 20170413
  Transmission Date: 20170830
  Serious: Yes (Hospitalization)
  Sender: FDA-Public Use
  Company Number: None

PATIENT
  Age: 77 Year
  Sex: Male

DRUGS (2)
  1. LENALIDOMIDE [Suspect]
     Active Substance: LENALIDOMIDE
     Indication: PLASMA CELL MYELOMA
     Route: 048
     Dates: start: 20170320
  2. ANAKINRA [Suspect]
     Active Substance: ANAKINRA
     Indication: PLASMA CELL MYELOMA
     Dosage: 100 MG EVERY OTHER DAY INJECTION
     Dates: start: 20170320

REACTIONS (3)
  - Dyspnoea [None]
  - Macule [None]
  - Emphysema [None]

NARRATIVE: CASE EVENT DATE: 20170412
